FAERS Safety Report 11672680 (Version 1)
Quarter: 2015Q4

REPORT INFORMATION
  Report Type: Spontaneous
  Country: US (occurrence: None)
  Receive Date: 20151027
  Receipt Date: 20151027
  Transmission Date: 20160304
  Serious: No
  Sender: FDA-Public Use
  Company Number: None

PATIENT
  Age: 49 Year
  Sex: Female
  Weight: 90.72 kg

DRUGS (8)
  1. METFORMIN HCL [Concomitant]
     Active Substance: METFORMIN HYDROCHLORIDE
  2. FENOBRATE [Concomitant]
     Active Substance: FENOFIBRATE
  3. BYDUREON [Suspect]
     Active Substance: EXENATIDE
     Indication: TYPE 2 DIABETES MELLITUS
     Dosage: GIVEN INTO/UNDER THE SKIN
     Route: 058
     Dates: start: 20150816, end: 20151025
  4. BYDUREON [Concomitant]
     Active Substance: EXENATIDE
  5. VITAMIN D [Concomitant]
     Active Substance: CHOLECALCIFEROL
  6. GLIPIZIDE. [Concomitant]
     Active Substance: GLIPIZIDE
  7. TOUJEO INSULIN GLARGINE [Concomitant]
  8. WOMEN^S MULTI VITAMIN [Concomitant]

REACTIONS (7)
  - Injection site discharge [None]
  - Injection site mass [None]
  - Blood glucose increased [None]
  - Product reconstitution issue [None]
  - Needle issue [None]
  - Headache [None]
  - Device leakage [None]

NARRATIVE: CASE EVENT DATE: 20151025
